FAERS Safety Report 14028036 (Version 1)
Quarter: 2017Q3

REPORT INFORMATION
  Report Type: Spontaneous
  Country: US (occurrence: None)
  Receive Date: 20170930
  Receipt Date: 20170930
  Transmission Date: 20171128
  Serious: Yes (Hospitalization)
  Sender: FDA-Public Use
  Company Number: None

PATIENT
  Sex: Female
  Weight: 40 kg

DRUGS (1)
  1. MEMANTINE HYDROCHLORIDE. [Suspect]
     Active Substance: MEMANTINE HYDROCHLORIDE
     Dates: end: 20170912

REACTIONS (5)
  - Fatigue [None]
  - Tachycardia [None]
  - Hypotension [None]
  - Malaise [None]
  - Sepsis [None]

NARRATIVE: CASE EVENT DATE: 20170913
